FAERS Safety Report 6429616-8 (Version None)
Quarter: 2009Q4

REPORT INFORMATION
  Report Type: 
  Country: None (occurrence: None)
  Receive Date: 20091103
  Receipt Date: 20091019
  Transmission Date: 20100525
  Serious: Yes (Hospitalization)
  Sender: FDA-Public Use
  Company Number: 02100-JPN-06-0355

PATIENT
  Age: 73 Year
  Sex: Male
  Weight: 68.5 kg

DRUGS (5)
  1. PLETAL [Suspect]
     Indication: CEREBRAL INFARCTION
     Dosage: 81 MG, QD ORAL ; 81 MG, QD; ORAL ; 81 MG, QD:ORAL
     Route: 048
     Dates: start: 20051014, end: 20060701
  2. PLETAL [Suspect]
     Indication: CEREBRAL INFARCTION
     Dosage: 81 MG, QD ORAL ; 81 MG, QD; ORAL ; 81 MG, QD:ORAL
     Route: 048
     Dates: start: 20060713, end: 20070206
  3. PLETAL [Suspect]
     Indication: CEREBRAL INFARCTION
     Dosage: 81 MG, QD ORAL ; 81 MG, QD; ORAL ; 81 MG, QD:ORAL
     Route: 048
     Dates: start: 20070215
  4. NORVASC [Concomitant]
  5. MAGNESIUM OXIDE (MAGNESIUM OXIDE) [Concomitant]

REACTIONS (6)
  - COLONIC POLYP [None]
  - CONTUSION [None]
  - FALL [None]
  - GASTROINTESTINAL TRACT ADENOMA [None]
  - MUSCLE STRAIN [None]
  - SUBCUTANEOUS HAEMATOMA [None]
